FAERS Safety Report 9056881 (Version 1)
Quarter: 2013Q1

REPORT INFORMATION
  Report Type: Spontaneous
  Country: FR (occurrence: FR)
  Receive Date: 20130201
  Receipt Date: 20130201
  Transmission Date: 20140127
  Serious: Yes (Hospitalization)
  Sender: FDA-Public Use
  Company Number: FR-VIIV HEALTHCARE LIMITED-B0861973A

PATIENT
  Age: 54 None
  Sex: Male

DRUGS (13)
  1. KIVEXA [Suspect]
     Indication: HIV INFECTION
     Route: 048
  2. TAZOCILLINE [Suspect]
     Indication: PYREXIA
     Route: 042
     Dates: start: 20120108
  3. SUSTIVA [Suspect]
     Indication: HIV INFECTION
     Route: 048
  4. REYATAZ [Suspect]
     Indication: HIV INFECTION
     Route: 048
  5. NORVIR [Suspect]
     Indication: HIV INFECTION
     Route: 048
  6. CARMUSTINE [Concomitant]
     Indication: BONE MARROW CONDITIONING REGIMEN
     Dates: start: 201201
  7. CYTARABINE [Concomitant]
     Indication: BONE MARROW CONDITIONING REGIMEN
     Dates: start: 201201
  8. ETOPOSIDE [Concomitant]
     Indication: BONE MARROW CONDITIONING REGIMEN
     Dates: start: 201201
  9. MELPHALAN [Concomitant]
     Indication: BONE MARROW CONDITIONING REGIMEN
     Route: 065
     Dates: start: 201201
  10. NEULASTA [Concomitant]
     Dosage: 6MG PER DAY
     Dates: start: 20120105
  11. CLAMOXYL [Concomitant]
     Indication: ANTIBIOTIC PROPHYLAXIS
     Route: 065
     Dates: start: 201201, end: 20120114
  12. ZELITREX [Concomitant]
     Indication: PROPHYLAXIS
     Route: 065
     Dates: start: 201201, end: 20120114
  13. TRIFLUCAN [Concomitant]
     Indication: PROPHYLAXIS
     Route: 065
     Dates: start: 201201, end: 20120114

REACTIONS (3)
  - Convulsion [Not Recovered/Not Resolved]
  - Pyrexia [Unknown]
  - CSF protein increased [Unknown]
